FAERS Safety Report 20923685 (Version 2)
Quarter: 2022Q3

REPORT INFORMATION
  Report Type: Report from Study
  Country: DE (occurrence: DE)
  Receive Date: 20220607
  Receipt Date: 20220919
  Transmission Date: 20221026
  Serious: Yes (Other)
  Sender: FDA-Public Use
  Company Number: DE-NOVARTISPH-NVSC2020DE118827

PATIENT
  Sex: Female
  Weight: 75 kg

DRUGS (2)
  1. KISQALI [Suspect]
     Active Substance: RIBOCICLIB
     Indication: Hormone receptor positive HER2 negative breast cancer
     Dosage: 600 MG, QD (SCHEMA 21 DAYS INTAKE, 7 DAYS PAUSE)
     Route: 048
     Dates: start: 20190409, end: 20220314
  2. LETROZOLE [Suspect]
     Active Substance: LETROZOLE
     Indication: Hormone receptor positive HER2 negative breast cancer
     Dosage: 600 MG, QD
     Route: 048
     Dates: start: 20190410

REACTIONS (4)
  - Neutropenia [Recovering/Resolving]
  - Thrombocytopenia [Not Recovered/Not Resolved]
  - Hyperkalaemia [Not Recovered/Not Resolved]
  - Anaemia [Not Recovered/Not Resolved]

NARRATIVE: CASE EVENT DATE: 20200406
